FAERS Safety Report 8359175-4 (Version None)
Quarter: 2012Q2

REPORT INFORMATION
  Report Type: 
  Country: None (occurrence: None)
  Receive Date: 20120515
  Receipt Date: 20120509
  Transmission Date: 20120825
  Serious: Yes (Other)
  Sender: FDA-Public Use
  Company Number: CA-AMGEN-CANSP2012015931

PATIENT
  Age: 55 Year
  Sex: Male

DRUGS (11)
  1. ASPIRIN [Concomitant]
     Dosage: 81 MG, UNK
  2. INSULIN [Concomitant]
     Dosage: UNK
  3. ENBREL [Suspect]
     Indication: ANKYLOSING SPONDYLITIS
     Dosage: 50 MG, QWK
     Route: 058
     Dates: start: 20100322, end: 20120305
  4. ENBREL [Suspect]
     Dosage: 50 MG, QWK
     Route: 058
     Dates: start: 20100322, end: 20120307
  5. DIOVAN [Concomitant]
     Dosage: UNK
  6. VOLTAREN [Concomitant]
     Dosage: 50 MG, UNK
  7. PRILOSEC [Concomitant]
     Dosage: UNK
  8. VENTOLIN [Concomitant]
     Dosage: UNK
  9. METFORMIN HCL [Concomitant]
     Dosage: UNK
  10. DOMPERIDONE [Concomitant]
     Dosage: UNK
  11. NITROGLYCERIN SPRAY [Concomitant]
     Dosage: 0.4 MG, UNK

REACTIONS (1)
  - PROSTATE CANCER [None]
